FAERS Safety Report 4428360-6 (Version None)
Quarter: 2004Q3

REPORT INFORMATION
  Report Type: 
  Country: None (occurrence: None)
  Receive Date: 20040818
  Receipt Date: 20040517
  Transmission Date: 20050211
  Serious: Yes (Life-Threatening, Other)
  Sender: FDA-Public Use
  Company Number: US-BRISTOL-MYERS SQUIBB COMPANY-12590972

PATIENT
  Age: 57 Year
  Sex: Male

DRUGS (5)
  1. ERBITUX [Suspect]
     Indication: COLON CANCER
     Dosage: 1ST INFUSION.
     Route: 042
     Dates: start: 20040503, end: 20040503
  2. CPT-11 [Concomitant]
  3. DIPHENHYDRAMINE [Concomitant]
     Indication: PREMEDICATION
     Route: 042
     Dates: start: 20040503, end: 20040503
  4. CIMETIDINE [Concomitant]
     Indication: PREMEDICATION
     Route: 042
     Dates: start: 20040503, end: 20040503
  5. DECADRON [Concomitant]
     Indication: PREMEDICATION
     Route: 042
     Dates: start: 20040503, end: 20040503

REACTIONS (6)
  - DISORIENTATION [None]
  - DYSPNOEA [None]
  - FLUSHING [None]
  - GENERALISED ERYTHEMA [None]
  - HYPOTENSION [None]
  - LOSS OF CONSCIOUSNESS [None]
